FAERS Safety Report 5162192-9 (Version None)
Quarter: 2006Q4

REPORT INFORMATION
  Report Type: 
  Country: None (occurrence: None)
  Receive Date: 20061121
  Receipt Date: 20061110
  Transmission Date: 20070319
  Serious: No
  Sender: FDA-Public Use
  Company Number: 2006-150212-NL

PATIENT
  Age: 33 Year
  Sex: Female

DRUGS (2)
  1. ETONOGESTREL [Suspect]
     Indication: CONTRACEPTION
     Dosage: DF SUBDERMAL
     Route: 059
     Dates: start: 20060821, end: 20061003
  2. FLUCONAZOLE [Concomitant]

REACTIONS (3)
  - ANGER [None]
  - DEPRESSION [None]
  - MOOD ALTERED [None]
